FAERS Safety Report 5263226-3 (Version None)
Quarter: 2007Q1

REPORT INFORMATION
  Report Type: 
  Country: None (occurrence: None)
  Receive Date: 20061219
  Receipt Date: 20061115
  Transmission Date: 20070707
  Serious: No
  Sender: FDA-Public Use
  Company Number: 2006US002330

PATIENT
  Age: 79 Year
  Sex: Female

DRUGS (9)
  1. VESICARE [Suspect]
     Indication: POLLAKIURIA
     Dosage: 5 MG, UID/QD, ORAL
     Route: 048
     Dates: start: 20061011
  2. COUMADIN [Concomitant]
  3. AMOXICILLIN [Concomitant]
  4. DIOVAN [Concomitant]
  5. VICODIN [Concomitant]
  6. EVISTA [Concomitant]
  7. HYDROCHLOROTHIAZIDE [Concomitant]
  8. SYNTHROID [Concomitant]
  9. AZO-STANDARD (PHENAZOPYRIDINE HYDROCHLORIDE) [Concomitant]

REACTIONS (1)
  - DRUG INEFFECTIVE [None]
